FAERS Safety Report 10604391 (Version 1)
Quarter: 2014Q4

REPORT INFORMATION
  Report Type: Spontaneous
  Country: US (occurrence: US)
  Receive Date: 20141124
  Receipt Date: 20141124
  Transmission Date: 20150529
  Serious: No
  Sender: FDA-Public Use
  Company Number: US-SA-2014SA048552

PATIENT
  Age: 74 Year
  Sex: Female

DRUGS (1)
  1. RENVELA [Suspect]
     Active Substance: SEVELAMER CARBONATE
     Indication: HYPERPHOSPHATAEMIA
     Dosage: FIVE 800 MG TABLETS WITH MEALS AND THREE 800 MG TABLETS IF SHE HAS A SNACK
     Route: 048

REACTIONS (1)
  - Overdose [Unknown]
